FAERS Safety Report 4834868-1 (Version None)
Quarter: 2005Q4

REPORT INFORMATION
  Report Type: 
  Country: None (occurrence: None)
  Receive Date: 20051122
  Receipt Date: 20050512
  Transmission Date: 20060501
  Serious: Yes (Death, Life-Threatening)
  Sender: FDA-Public Use
  Company Number: 2005CG00915

PATIENT
  Age: 69 Year
  Sex: Male

DRUGS (5)
  1. CRESTOR [Suspect]
     Route: 048
  2. ALDALIX [Suspect]
     Route: 048
  3. AMAREL [Suspect]
     Indication: DIABETES MELLITUS NON-INSULIN-DEPENDENT
     Route: 048
  4. SELOKEN [Concomitant]
     Route: 048
  5. ALPRESS [Concomitant]

REACTIONS (13)
  - ATRIAL FIBRILLATION [None]
  - CHOLELITHIASIS [None]
  - DEPRESSED LEVEL OF CONSCIOUSNESS [None]
  - HAEMODYNAMIC INSTABILITY [None]
  - MULTI-ORGAN FAILURE [None]
  - NECROSIS OF ARTERY [None]
  - OLIGURIA [None]
  - PANCREATITIS HAEMORRHAGIC [None]
  - PANCREATITIS NECROTISING [None]
  - RENAL INFARCT [None]
  - RESPIRATORY DISTRESS [None]
  - SEPTIC SHOCK [None]
  - SPLENIC NECROSIS [None]
